FAERS Safety Report 8968186 (Version 1)
Quarter: 2012Q4

REPORT INFORMATION
  Report Type: 
  Country: US (occurrence: US)
  Receive Date: 20121218
  Receipt Date: 20121218
  Transmission Date: 20130627
  Serious: No
  Sender: FDA-Public Use
  Company Number: US-PFIZER INC-2012310175

PATIENT
  Age: 43 Year
  Sex: Male
  Weight: 89.8 kg

DRUGS (4)
  1. PRISTIQ [Suspect]
     Indication: DEPRESSION
     Dosage: UNK, daily (by splitting the 50mg tablet)
     Route: 048
     Dates: start: 2012, end: 2012
  2. PRISTIQ [Suspect]
     Dosage: 25 mg, Daily
     Route: 048
     Dates: start: 2012, end: 2012
  3. PRISTIQ [Suspect]
     Dosage: 50 mg, Daily
     Route: 048
     Dates: start: 2012
  4. AMBIEN [Concomitant]
     Indication: SLEEP DISORDER
     Dosage: 10 mg,daily

REACTIONS (5)
  - Wrong technique in drug usage process [Unknown]
  - Pollakiuria [Not Recovered/Not Resolved]
  - Flatulence [Not Recovered/Not Resolved]
  - Diarrhoea [Not Recovered/Not Resolved]
  - Abdominal pain upper [Not Recovered/Not Resolved]
